FAERS Safety Report 5587018-0 (Version None)
Quarter: 2008Q1

REPORT INFORMATION
  Report Type: 
  Country: None (occurrence: None)
  Receive Date: 20080110
  Receipt Date: 20080107
  Transmission Date: 20080703
  Serious: Yes (Hospitalization)
  Sender: FDA-Public Use
  Company Number: A0702469A

PATIENT
  Sex: Female

DRUGS (13)
  1. TOPOTECAN [Suspect]
     Dosage: 3.3MG CYCLIC
     Route: 042
     Dates: start: 20071204, end: 20071206
  2. BEVACIZUMAB [Suspect]
     Dosage: 682MG CYCLIC
     Route: 042
     Dates: start: 20071204, end: 20071204
  3. CISPLATIN [Suspect]
     Dosage: 73MG CYCLIC
     Route: 042
     Dates: start: 20071204, end: 20071204
  4. VERAPAMIL [Concomitant]
     Dosage: 240MG TWICE PER DAY
     Route: 048
  5. HYDROCHLOROTHIAZIDE [Concomitant]
     Dosage: 25MG PER DAY
     Route: 048
  6. METOPROLOL [Concomitant]
     Dosage: 25MG TWICE PER DAY
     Route: 048
  7. PERCOCET [Concomitant]
     Indication: PAIN
     Route: 048
  8. MORPHINE [Concomitant]
     Dosage: 2MG TWELVE TIMES PER DAY
  9. ZOFRAN [Concomitant]
     Dosage: 4MG FOUR TIMES PER DAY
     Route: 048
  10. CENTRUM SILVER [Concomitant]
  11. REMERON [Concomitant]
     Dosage: 15MG AT NIGHT
     Route: 048
  12. FERROUS SULFATE [Concomitant]
     Dosage: 324MG PER DAY
     Route: 048
  13. NYSTATIN [Concomitant]

REACTIONS (18)
  - ALANINE AMINOTRANSFERASE ABNORMAL [None]
  - ASPARTATE AMINOTRANSFERASE ABNORMAL [None]
  - ASTHENIA [None]
  - BLOOD CREATININE ABNORMAL [None]
  - DECREASED APPETITE [None]
  - DYSPHONIA [None]
  - FAILURE TO THRIVE [None]
  - FATIGUE [None]
  - HAEMOGLOBIN ABNORMAL [None]
  - HYPOALBUMINAEMIA [None]
  - HYPOCALCAEMIA [None]
  - HYPOKALAEMIA [None]
  - HYPONATRAEMIA [None]
  - NEUTROPHIL COUNT ABNORMAL [None]
  - PLATELET COUNT ABNORMAL [None]
  - RENAL FAILURE [None]
  - URINE OUTPUT DECREASED [None]
  - WHITE BLOOD CELL COUNT ABNORMAL [None]
